FAERS Safety Report 8190057-7 (Version None)
Quarter: 2012Q1

REPORT INFORMATION
  Report Type: 
  Country: None (occurrence: None)
  Receive Date: 20120307
  Receipt Date: 20120302
  Transmission Date: 20120608
  Serious: Yes (Death, Hospitalization)
  Sender: FDA-Public Use
  Company Number: US-JNJFOC-20120204342

PATIENT
  Age: 39 Year
  Sex: Female
  Weight: 80 kg

DRUGS (10)
  1. DIPHENHYDRAMINE HCL [Suspect]
     Indication: PRODUCT USED FOR UNKNOWN INDICATION
     Route: 048
  2. BENZODIAZEPINE NOS [Suspect]
     Indication: PRODUCT USED FOR UNKNOWN INDICATION
     Route: 048
  3. ACETAMINOPHEN [Suspect]
     Route: 048
  4. TRAMADOL HCL [Suspect]
     Indication: PRODUCT USED FOR UNKNOWN INDICATION
     Route: 048
  5. QUETIAPINE [Suspect]
     Indication: PRODUCT USED FOR UNKNOWN INDICATION
     Route: 048
  6. PAROXETINE [Suspect]
     Indication: PRODUCT USED FOR UNKNOWN INDICATION
     Route: 048
  7. DIPHENHYDRAMINE HCL [Suspect]
     Route: 048
  8. VENLAFAXINE [Suspect]
     Indication: PRODUCT USED FOR UNKNOWN INDICATION
     Route: 048
  9. METOPROLOL SUCCINATE [Concomitant]
     Indication: PRODUCT USED FOR UNKNOWN INDICATION
     Route: 048
  10. ACETAMINOPHEN [Suspect]
     Indication: PRODUCT USED FOR UNKNOWN INDICATION
     Route: 048

REACTIONS (11)
  - COMA [None]
  - HYPOGLYCAEMIA [None]
  - SHOCK [None]
  - RENAL FAILURE [None]
  - ACUTE HEPATIC FAILURE [None]
  - HYPOXIC-ISCHAEMIC ENCEPHALOPATHY [None]
  - MULTI-ORGAN FAILURE [None]
  - UPPER GASTROINTESTINAL HAEMORRHAGE [None]
  - ISCHAEMIC HEPATITIS [None]
  - LACTIC ACIDOSIS [None]
  - MULTIPLE DRUG OVERDOSE [None]
